FAERS Safety Report 23678596 (Version 2)
Quarter: 2025Q2

REPORT INFORMATION
  Report Type: Report from Study
  Country: US (occurrence: US)
  Receive Date: 20240327
  Receipt Date: 20250519
  Transmission Date: 20250716
  Serious: Yes (Other)
  Sender: MYLAN
  Company Number: US-MYLANLABS-2024M1027490

PATIENT
  Sex: Male

DRUGS (4)
  1. PHENYTOIN [Suspect]
     Active Substance: PHENYTOIN
     Indication: Product used for unknown indication
  2. PHENYTOIN [Suspect]
     Active Substance: PHENYTOIN
     Route: 065
  3. PHENYTOIN [Suspect]
     Active Substance: PHENYTOIN
     Route: 065
  4. PHENYTOIN [Suspect]
     Active Substance: PHENYTOIN

REACTIONS (2)
  - Seizure [Recovered/Resolved]
  - Product substitution issue [Unknown]
